FAERS Safety Report 12478366 (Version 1)
Quarter: 2016Q2

REPORT INFORMATION
  Report Type: Spontaneous
  Country: US (occurrence: US)
  Receive Date: 20160618
  Receipt Date: 20160618
  Transmission Date: 20160815
  Serious: No
  Sender: FDA-Public Use
  Company Number: US-ASTRAZENECA-2016SE60741

PATIENT
  Age: 22386 Day
  Sex: Female
  Weight: 65.8 kg

DRUGS (2)
  1. XOPENEX INHALER [Concomitant]
     Indication: PROPHYLAXIS
     Dosage: 2 PUFFS AS NEEDED
     Route: 055
  2. SYMBICORT [Suspect]
     Active Substance: BUDESONIDE\FORMOTEROL FUMARATE DIHYDRATE
     Indication: CHRONIC OBSTRUCTIVE PULMONARY DISEASE
     Dosage: 160/4.5 MCG 120 INHALATIONS, TWO PUFFS TWICE PER DAY.
     Route: 055
     Dates: start: 20160505

REACTIONS (3)
  - Product quality issue [Unknown]
  - Memory impairment [Unknown]
  - Intentional product misuse [Unknown]

NARRATIVE: CASE EVENT DATE: 20160505
